FAERS Safety Report 5343290-3 (Version None)
Quarter: 2007Q2

REPORT INFORMATION
  Report Type: 
  Country: None (occurrence: None)
  Receive Date: 20070502
  Receipt Date: 20061003
  Transmission Date: 20071010
  Serious: Yes (Hospitalization)
  Sender: FDA-Public Use
  Company Number: PHEH2006US12444

PATIENT
  Age: 78 Year
  Sex: Male

DRUGS (4)
  1. LOTREL [Suspect]
     Indication: HYPERTENSION
     Dosage: 5/20, QD, ORAL
     Route: 048
     Dates: start: 20040101, end: 20060401
  2. TOPROL-XL [Concomitant]
  3. ISOSORBIDE MONONITRATE [Concomitant]
  4. LIPITOR [Concomitant]

REACTIONS (3)
  - CHEST PAIN [None]
  - HYPOAESTHESIA [None]
  - OEDEMA PERIPHERAL [None]
